FAERS Safety Report 8427546-3 (Version None)
Quarter: 2012Q2

REPORT INFORMATION
  Report Type: 
  Country: None (occurrence: None)
  Receive Date: 20120611
  Receipt Date: 20120601
  Transmission Date: 20120825
  Serious: Yes (Other)
  Sender: FDA-Public Use
  Company Number: US-EISAI INC-E3810-05607-SPO-US

PATIENT
  Sex: Female
  Weight: 46 kg

DRUGS (2)
  1. ACIPHEX [Suspect]
     Indication: ULCER
     Route: 048
  2. ZANTAC [Suspect]
     Route: 048

REACTIONS (4)
  - OSTEOPOROSIS [None]
  - ABNORMAL LOSS OF WEIGHT [None]
  - COLITIS [None]
  - DYSPEPSIA [None]
